FAERS Safety Report 7690143-1 (Version None)
Quarter: 2011Q3

REPORT INFORMATION
  Report Type: 
  Country: None (occurrence: None)
  Receive Date: 20110818
  Receipt Date: 20110804
  Transmission Date: 20111222
  Serious: Yes (Other)
  Sender: FDA-Public Use
  Company Number: US-JNJFOC-20110802375

PATIENT
  Sex: Female
  Weight: 112.04 kg

DRUGS (1)
  1. DOXORUBICIN HCL [Suspect]
     Indication: OVARIAN CANCER
     Route: 042
     Dates: start: 20110712

REACTIONS (6)
  - CHEST PAIN [None]
  - DIZZINESS [None]
  - FATIGUE [None]
  - COGNITIVE DISORDER [None]
  - NERVOUSNESS [None]
  - NAUSEA [None]
